FAERS Safety Report 6667601-1 (Version None)
Quarter: 2010Q2

REPORT INFORMATION
  Report Type: 
  Country: None (occurrence: None)
  Receive Date: 20100405
  Receipt Date: 20100402
  Transmission Date: 20101027
  Serious: Yes (Hospitalization)
  Sender: FDA-Public Use
  Company Number: US-ELI_LILLY_AND_COMPANY-US201001001643

PATIENT
  Age: 29 Year
  Sex: Male
  Weight: 56.236 kg

DRUGS (2)
  1. OLANZAPINE [Suspect]
     Indication: SCHIZOPHRENIA
     Dates: start: 20090428
  2. LORAZEPAM [Concomitant]
     Indication: CATATONIA
     Dosage: UNK, UNK
     Dates: start: 20090512

REACTIONS (2)
  - SCHIZOPHRENIA [None]
  - SUICIDAL IDEATION [None]
